FAERS Safety Report 9591184 (Version 1)
Quarter: 2013Q4

REPORT INFORMATION
  Report Type: Spontaneous
  Country: US (occurrence: US)
  Receive Date: 20131003
  Receipt Date: 20131003
  Transmission Date: 20140711
  Serious: No
  Sender: FDA-Public Use
  Company Number: US-AMGEN-USASP2012078973

PATIENT
  Age: 54 Year
  Sex: Female
  Weight: 68.03 kg

DRUGS (10)
  1. ENBREL [Suspect]
     Indication: RHEUMATOID ARTHRITIS
     Dosage: 50 MG, QWK
     Route: 058
     Dates: end: 20121125
  2. PROGESTERON [Concomitant]
     Dosage: 100 MG, UNK
  3. PROVIGIL [Concomitant]
     Dosage: 100 MG, UNK
  4. OMEPRAZOLE                         /00661202/ [Concomitant]
     Dosage: 10 MG, UNK
  5. LISINOPRIL AND HYDROCHLOROTHIAZIDE [Concomitant]
     Dosage: 20-12.5
  6. FLONASE [Concomitant]
     Dosage: 0.05 %, UNK
  7. MULTIVITAMINS, PLAIN [Concomitant]
     Dosage: UNK
  8. VITAMIN D                          /00107901/ [Concomitant]
     Dosage: 1000 UNIT, UNK
  9. LYSINE                             /00919902/ [Concomitant]
     Dosage: 500 MG, UNK
  10. METAMUCIL                          /00029101/ [Concomitant]
     Dosage: 28 %, UNK

REACTIONS (2)
  - Mucosal erosion [Unknown]
  - Gingival pain [Unknown]
